FAERS Safety Report 7386605-7 (Version None)
Quarter: 2011Q1

REPORT INFORMATION
  Report Type: 
  Country: None (occurrence: None)
  Receive Date: 20110331
  Receipt Date: 20110323
  Transmission Date: 20110831
  Serious: Yes (Other)
  Sender: FDA-Public Use
  Company Number: US-AMGEN-USASP2011015880

PATIENT
  Age: 60 Year
  Sex: Male

DRUGS (2)
  1. ENBREL [Suspect]
     Indication: RHEUMATOID ARTHRITIS
     Dosage: 25 MG, 2 TIMES/WK
     Dates: start: 20030306
  2. MINOCYCLINE [Concomitant]

REACTIONS (5)
  - ROSACEA [None]
  - RHEUMATOID ARTHRITIS [None]
  - ADVERSE DRUG REACTION [None]
  - HYPERSOMNIA [None]
  - DIARRHOEA [None]
